FAERS Safety Report 22932712 (Version 4)
Quarter: 2024Q1

REPORT INFORMATION
  Report Type: Spontaneous
  Country: US (occurrence: US)
  Receive Date: 20230912
  Receipt Date: 20240229
  Transmission Date: 20240410
  Serious: No
  Sender: FDA-Public Use
  Company Number: US-SA-SAC20230911000327

PATIENT
  Age: 57 Year
  Sex: Female

DRUGS (2)
  1. DUPIXENT [Suspect]
     Active Substance: DUPILUMAB
     Indication: Dermatitis atopic
     Dosage: 600 MG, 1X
     Route: 058
     Dates: start: 20230802, end: 20230802
  2. DUPIXENT [Suspect]
     Active Substance: DUPILUMAB
     Indication: Asthma
     Dosage: 300 MG, QOW
     Route: 058
     Dates: start: 20230817

REACTIONS (9)
  - Dyspnoea [Recovering/Resolving]
  - Diarrhoea [Not Recovered/Not Resolved]
  - Ocular discomfort [Unknown]
  - Eye swelling [Unknown]
  - Ocular hyperaemia [Unknown]
  - Urticaria [Unknown]
  - Toothache [Recovered/Resolved]
  - Ocular hyperaemia [Recovered/Resolved]
  - Dry eye [Unknown]

NARRATIVE: CASE EVENT DATE: 20230101
